FAERS Safety Report 8214921-5 (Version None)
Quarter: 2012Q1

REPORT INFORMATION
  Report Type: 
  Country: None (occurrence: None)
  Receive Date: 20120313
  Receipt Date: 20120228
  Transmission Date: 20120608
  Serious: Yes (Congenital Anomaly)
  Sender: FDA-Public Use
  Company Number: VALP20120003

PATIENT

DRUGS (2)
  1. VALPROIC ACID [Suspect]
     Indication: MATERNAL EXPOSURE DURING PREGNANCY
     Dosage: 3000 MG, TRANSPLACENTAL
     Route: 064
  2. LAMOTRIGINE [Suspect]
     Indication: MATERNAL EXPOSURE DURING PREGNANCY
     Dosage: 100 MG, TRANSPLACENTAL
     Route: 064

REACTIONS (5)
  - MATERNAL DRUGS AFFECTING FOETUS [None]
  - SYNDACTYLY [None]
  - PATENT DUCTUS ARTERIOSUS [None]
  - ATRIAL SEPTAL DEFECT [None]
  - MENINGOMYELOCELE [None]
